FAERS Safety Report 13909473 (Version 1)
Quarter: 2017Q3

REPORT INFORMATION
  Report Type: Spontaneous
  Country: IN (occurrence: IN)
  Receive Date: 20170828
  Receipt Date: 20170828
  Transmission Date: 20171127
  Serious: Yes (Life-Threatening, Hospitalization, Other)
  Sender: FDA-Public Use
  Company Number: IN-ALVOGEN-2016-ALVOGEN-022382

PATIENT
  Age: 58 Year
  Sex: Male

DRUGS (16)
  1. LINEZOLID. [Suspect]
     Active Substance: LINEZOLID
     Indication: INFECTION PROPHYLAXIS
     Route: 042
  2. FLUVOXAMINE [Suspect]
     Active Substance: FLUVOXAMINE
     Indication: OBSESSIVE-COMPULSIVE DISORDER
  3. FENTANYL. [Suspect]
     Active Substance: FENTANYL
     Indication: SEDATION
  4. CLONIDINE. [Concomitant]
     Active Substance: CLONIDINE
  5. FENTANYL. [Suspect]
     Active Substance: FENTANYL
     Indication: SEDATION
  6. SERTRALINE [Suspect]
     Active Substance: SERTRALINE HYDROCHLORIDE
     Indication: OBSESSIVE-COMPULSIVE DISORDER
  7. DOMPERIDONE [Concomitant]
     Active Substance: DOMPERIDONE
  8. FUROSEMIDE. [Concomitant]
     Active Substance: FUROSEMIDE
     Route: 042
  9. FENTANYL. [Suspect]
     Active Substance: FENTANYL
     Indication: ANALGESIC THERAPY
  10. TORASEMIDE [Concomitant]
     Active Substance: TORSEMIDE
  11. FENTANYL. [Suspect]
     Active Substance: FENTANYL
     Indication: ANALGESIC THERAPY
  12. FLUOXETINE [Suspect]
     Active Substance: FLUOXETINE HYDROCHLORIDE
     Indication: OBSESSIVE-COMPULSIVE DISORDER
  13. FLUDROCORTISONE [Concomitant]
     Active Substance: FLUDROCORTISONE
  14. GLYCERYL TRINITRATE [Concomitant]
     Active Substance: NITROGLYCERIN
  15. MIDAZOLAM [Concomitant]
     Active Substance: MIDAZOLAM HYDROCHLORIDE
     Indication: SEDATION
  16. MIDAZOLAM [Concomitant]
     Active Substance: MIDAZOLAM HYDROCHLORIDE
     Indication: SEDATION

REACTIONS (2)
  - Serotonin syndrome [Recovered/Resolved]
  - Pulmonary oedema [Recovered/Resolved]
